FAERS Safety Report 7040137-4 (Version None)
Quarter: 2010Q4

REPORT INFORMATION
  Report Type: 
  Country: None (occurrence: None)
  Receive Date: 20101012
  Receipt Date: 20101001
  Transmission Date: 20110411
  Serious: Yes (Hospitalization, Other)
  Sender: FDA-Public Use
  Company Number: PHHY2010RO65275

PATIENT
  Sex: Female

DRUGS (3)
  1. ZOMETA [Suspect]
     Indication: METASTASES TO BONE
     Dosage: 4 MG, QMO
  2. TRAMADOL HCL [Concomitant]
     Dosage: 2 TB/DAY
  3. GABARAN [Concomitant]
     Dosage: 3 TB/DAY

REACTIONS (4)
  - BONE LESION [None]
  - GINGIVAL SWELLING [None]
  - PAIN [None]
  - ULCER [None]
